FAERS Safety Report 17931047 (Version 4)
Quarter: 2022Q2

REPORT INFORMATION
  Report Type: Spontaneous
  Country: US (occurrence: US)
  Receive Date: 20200623
  Receipt Date: 20220411
  Transmission Date: 20220721
  Serious: Yes (Other)
  Sender: FDA-Public Use
  Company Number: None

PATIENT

DRUGS (1)
  1. KYMRIAH [Suspect]
     Active Substance: TISAGENLECLEUCEL
     Indication: Acute lymphocytic leukaemia
     Dosage: 1 DOSAGE FORM, ONCE/SINGLE (INTO BLOODSTREAM VIA VEIN)
     Route: 042

REACTIONS (4)
  - Blast cell count increased [Unknown]
  - Cytokine release syndrome [Unknown]
  - Full blood count abnormal [Unknown]
  - White blood cell count increased [Unknown]
